FAERS Safety Report 18755565 (Version 1)
Quarter: 2021Q1

REPORT INFORMATION
  Report Type: Spontaneous
  Country: SK (occurrence: SK)
  Receive Date: 20210119
  Receipt Date: 20210119
  Transmission Date: 20210419
  Serious: Yes (Death)
  Sender: FDA-Public Use
  Company Number: SK-ROCHE-2749504

PATIENT
  Age: 59 Year
  Sex: Female

DRUGS (2)
  1. ACTILYSE [Suspect]
     Active Substance: ALTEPLASE
     Indication: CEREBROVASCULAR ACCIDENT
     Dosage: DATE OF MOST RECENT DOSE OF ALTEPLASE: 04/JAN/2021
     Route: 065
     Dates: start: 20210104
  2. CLOPIDOGREL [Concomitant]
     Active Substance: CLOPIDOGREL BISULFATE
     Indication: PRODUCT USED FOR UNKNOWN INDICATION
     Dosage: 1 TABLET TAKEN TOTALLY FREQUENCY: 1, FREQUENCY UNIT: 809
     Route: 065
     Dates: start: 20210104, end: 20210104

REACTIONS (3)
  - Procedural complication [Fatal]
  - Haemorrhage intracranial [Fatal]
  - Condition aggravated [Fatal]

NARRATIVE: CASE EVENT DATE: 20210104
